FAERS Safety Report 26154282 (Version 1)
Quarter: 2025Q4

REPORT INFORMATION
  Report Type: Report from Study
  Country: TH (occurrence: TH)
  Receive Date: 20251215
  Receipt Date: 20251215
  Transmission Date: 20260117
  Serious: Yes (Hospitalization)
  Sender: MERCK KGAA
  Company Number: TH-Merck Healthcare KGaA-2025063236

PATIENT
  Age: 0 Year
  Sex: Female

DRUGS (2)
  1. SAIZEN [Suspect]
     Active Substance: SOMATROPIN
     Indication: Product used for unknown indication
     Dosage: 0.25MGX7DAY/WEEK
     Dates: start: 20240905
  2. SAIZEN [Suspect]
     Active Substance: SOMATROPIN

REACTIONS (2)
  - Peripheral swelling [Recovering/Resolving]
  - Vitamin C deficiency [Unknown]

NARRATIVE: CASE EVENT DATE: 20251205
